FAERS Safety Report 21493849 (Version 8)
Quarter: 2023Q2

REPORT INFORMATION
  Report Type: Report from Study
  Country: CN (occurrence: CN)
  Receive Date: 20221021
  Receipt Date: 20230522
  Transmission Date: 20230722
  Serious: Yes (Death, Hospitalization)
  Sender: FDA-Public Use
  Company Number: CN-PFIZER INC-PV202200085547

PATIENT
  Age: 65 Year
  Sex: Male
  Weight: 91 kg

DRUGS (7)
  1. EPIRUBICIN HYDROCHLORIDE [Suspect]
     Active Substance: EPIRUBICIN HYDROCHLORIDE
     Indication: Hepatocellular carcinoma
     Dosage: 40 MG, ONCE AS NEEDED
     Dates: start: 20220829, end: 20220829
  2. CAMRELIZUMAB [Suspect]
     Active Substance: CAMRELIZUMAB
     Indication: Hepatocellular carcinoma
     Dosage: 200 MG, EVERY 3 WEEKS, ANTI-FREEZE DRY POWDER FOR INJECTION, INTRAVENOUS PUMP
     Dates: start: 20221020, end: 20221020
  3. APATINIB [Suspect]
     Active Substance: APATINIB
     Indication: Hepatocellular carcinoma
     Dosage: 250 MG, 1X/DAY
     Route: 048
     Dates: start: 20221020, end: 20221026
  4. HERBALS\DIAMMONIUM GLYCYRRHIZINATE [Concomitant]
     Active Substance: HERBALS\DIAMMONIUM GLYCYRRHIZINATE
     Indication: Hepatitis
     Dosage: 150 MG, 3X/DAY, ENTERIC-COATED CAPSULES
     Route: 048
     Dates: start: 20200930, end: 20221009
  5. URSODIOL [Concomitant]
     Active Substance: URSODIOL
     Indication: Blood bilirubin increased
     Dosage: 0.25 G, 2X/DAY
     Route: 048
     Dates: start: 20221009
  6. ADEMETIONINE BUTANEDISULFONATE [Concomitant]
     Active Substance: ADEMETIONINE BUTANEDISULFONATE
     Indication: Blood bilirubin increased
     Dosage: 1 G, 1X/DAY, ENTERIC-COATED TABLETS
     Route: 048
     Dates: start: 20221009, end: 20221013
  7. ADEMETIONINE BUTANEDISULFONATE [Concomitant]
     Active Substance: ADEMETIONINE BUTANEDISULFONATE
     Indication: Blood bilirubin increased
     Dosage: 1000 MG, 1X/DAY
     Route: 042
     Dates: start: 20221013

REACTIONS (2)
  - Neoplasm progression [Fatal]
  - Aspartate aminotransferase increased [Recovering/Resolving]

NARRATIVE: CASE EVENT DATE: 20221010
